FAERS Safety Report 6044231-6 (Version None)
Quarter: 2009Q1

REPORT INFORMATION
  Report Type: 
  Country: None (occurrence: None)
  Receive Date: 20090114
  Receipt Date: 20090114
  Transmission Date: 20090719
  Serious: Yes (Life-Threatening)
  Sender: FDA-Public Use
  Company Number: None

PATIENT
  Age: 35 Year
  Sex: Female
  Weight: 52.1637 kg

DRUGS (1)
  1. CHANTIX [Suspect]
     Indication: SMOKING CESSATION THERAPY
     Dates: start: 20080102, end: 20080315

REACTIONS (6)
  - ABNORMAL BEHAVIOUR [None]
  - ANHEDONIA [None]
  - DEPRESSION [None]
  - EYE INFECTION [None]
  - SUICIDAL IDEATION [None]
  - THERAPEUTIC RESPONSE UNEXPECTED [None]
